FAERS Safety Report 11101440 (Version 4)
Quarter: 2016Q1

REPORT INFORMATION
  Report Type: Spontaneous
  Country: US (occurrence: US)
  Receive Date: 20150508
  Receipt Date: 20160128
  Transmission Date: 20160525
  Serious: Yes (Other)
  Sender: FDA-Public Use
  Company Number: US-PFIZER INC-2015155357

PATIENT
  Age: 66 Year
  Sex: Female

DRUGS (16)
  1. VORICONAZOLE. [Suspect]
     Active Substance: VORICONAZOLE
     Indication: SCEDOSPORIUM INFECTION
     Dosage: 400 MG, 2X/DAY (EVERY 12 HOURS)
     Dates: end: 20150518
  2. OMEPRAZOLE. [Concomitant]
     Active Substance: OMEPRAZOLE
     Dosage: UNK
  3. MAGNESIUM [Concomitant]
     Active Substance: MAGNESIUM
     Dosage: UNK
  4. VFEND [Suspect]
     Active Substance: VORICONAZOLE
     Indication: SCEDOSPORIUM INFECTION
     Dosage: 200 MG, 2X/DAY
     Dates: end: 20151231
  5. VORICONAZOLE. [Suspect]
     Active Substance: VORICONAZOLE
     Indication: FUNGAL INFECTION
     Dosage: 200 MG, 2X/DAY (EVERY 12 HOURS, INITIALLY)
     Dates: start: 201503
  6. PREDNISONE. [Concomitant]
     Active Substance: PREDNISONE
     Dosage: UNK
  7. NORCO [Concomitant]
     Active Substance: ACETAMINOPHEN\HYDROCODONE BITARTRATE
     Dosage: UNK (HYDROCODONE BITARTRATE-5, PARACETAMOL-325)
  8. FOLIC ACID. [Concomitant]
     Active Substance: FOLIC ACID
     Dosage: UNK
  9. CHOLEST-OFF [Concomitant]
     Active Substance: DIETARY SUPPLEMENT
     Dosage: UNK
  10. CALCIUM [Concomitant]
     Active Substance: CALCIUM
     Dosage: UNK
  11. MULTIVITAMINS [Concomitant]
     Active Substance: VITAMINS
  12. VFEND [Suspect]
     Active Substance: VORICONAZOLE
     Indication: FUNGAL INFECTION
     Dosage: 400 MG, 2X/DAY (EVERY 12 HOURS)
     Route: 048
     Dates: start: 20150518
  13. AMITRIPTYLINE [Concomitant]
     Active Substance: AMITRIPTYLINE
     Dosage: UNK
  14. BIOTIN [Concomitant]
     Active Substance: BIOTIN
     Dosage: UNK
  15. ZANTAC [Concomitant]
     Active Substance: RANITIDINE HYDROCHLORIDE
     Dosage: UNK
  16. RED YEAST RICE [Concomitant]
     Active Substance: DIETARY SUPPLEMENT
     Dosage: UNK

REACTIONS (6)
  - Head discomfort [Not Recovered/Not Resolved]
  - Incorrect dose administered [Unknown]
  - Vision blurred [Not Recovered/Not Resolved]
  - Retinopathy [Unknown]
  - Speech disorder [Not Recovered/Not Resolved]
  - Disturbance in attention [Not Recovered/Not Resolved]

NARRATIVE: CASE EVENT DATE: 201503
